FAERS Safety Report 4814472-1 (Version None)
Quarter: 2005Q4

REPORT INFORMATION
  Report Type: 
  Country: None (occurrence: None)
  Receive Date: 20051027
  Receipt Date: 20051027
  Transmission Date: 20060501
  Serious: Yes (Life-Threatening)
  Sender: FDA-Public Use
  Company Number: None

PATIENT
  Age: 34 Year
  Sex: Male
  Weight: 130 kg

DRUGS (2)
  1. FOMEPIZOLE  1GM/ML  ORPHAN [Suspect]
     Indication: BLOOD METHANOL
     Dates: start: 20051026, end: 20051026
  2. FOMEPIZOLE  1GM/ML  ORPHAN [Suspect]
     Indication: POISONING
     Dates: start: 20051026, end: 20051026

REACTIONS (5)
  - CYANOSIS [None]
  - INFUSION RELATED REACTION [None]
  - LARYNGEAL OEDEMA [None]
  - LOCAL SWELLING [None]
  - RESPIRATORY DISTRESS [None]
